FAERS Safety Report 9819855 (Version 1)
Quarter: 2014Q1

REPORT INFORMATION
  Report Type: Spontaneous
  Country: US (occurrence: None)
  Receive Date: 20140114
  Receipt Date: 20140114
  Transmission Date: 20141002
  Serious: No
  Sender: FDA-Public Use
  Company Number: None

PATIENT
  Age: 41 Year
  Sex: Female

DRUGS (1)
  1. HUMIRA PEN 40 MG [Suspect]
     Route: 058
     Dates: start: 2009

REACTIONS (5)
  - Abdominal injury [None]
  - Pain [None]
  - Renal cyst [None]
  - Urinary tract infection [None]
  - Protein total increased [None]
